FAERS Safety Report 5044500-2 (Version None)
Quarter: 2006Q3

REPORT INFORMATION
  Report Type: 
  Country: None (occurrence: None)
  Receive Date: 20060706
  Receipt Date: 20060703
  Transmission Date: 20061208
  Serious: Yes (Hospitalization)
  Sender: FDA-Public Use
  Company Number: 2006/198

PATIENT
  Age: 9 Year
  Sex: Female

DRUGS (2)
  1. AMOXICILLIN [Suspect]
     Route: 065
     Dates: start: 20030101
  2. AMOXICILLIN [Suspect]
     Route: 048
     Dates: start: 20060601

REACTIONS (2)
  - PURPURA [None]
  - RASH [None]
